FAERS Safety Report 5498414-4 (Version None)
Quarter: 2007Q4

REPORT INFORMATION
  Report Type: 
  Country: None (occurrence: None)
  Receive Date: 20071024
  Receipt Date: 20071017
  Transmission Date: 20080405
  Serious: Yes (Other)
  Sender: FDA-Public Use
  Company Number: 163-21880-07100985

PATIENT
  Age: 73 Year
  Sex: Male

DRUGS (2)
  1. REVLIMID [Suspect]
     Indication: MULTIPLE MYELOMA
     Dosage: 25 MG, DAILY 21/28, ORAL, 25 MG, DAILY 21/28, ORAL
     Route: 048
     Dates: start: 20070901, end: 20071001
  2. REVLIMID [Suspect]
     Indication: MULTIPLE MYELOMA
     Dosage: 25 MG, DAILY 21/28, ORAL, 25 MG, DAILY 21/28, ORAL
     Route: 048
     Dates: start: 20071015

REACTIONS (2)
  - CARDIAC DISORDER [None]
  - DYSPNOEA [None]
